FAERS Safety Report 4796791-0 (Version None)
Quarter: 2005Q3

REPORT INFORMATION
  Report Type: 
  Country: None (occurrence: None)
  Receive Date: 20050916
  Receipt Date: 20050329
  Transmission Date: 20060218
  Serious: Yes (Other)
  Sender: FDA-Public Use
  Company Number: US-JNJFOC-20050400122

PATIENT
  Sex: Female

DRUGS (1)
  1. TOPAMAX [Suspect]
     Indication: MIGRAINE PROPHYLAXIS
     Dosage: 5 MG, IN 1 DAY, ORAL; ORAL
     Route: 048
     Dates: end: 20050323

REACTIONS (6)
  - ADVERSE DRUG REACTION [None]
  - ASTHMA [None]
  - COUGH [None]
  - GINGIVAL HYPERPLASIA [None]
  - MENIERE'S DISEASE [None]
  - TINNITUS [None]
